FAERS Safety Report 4838951-6 (Version None)
Quarter: 2005Q4

REPORT INFORMATION
  Report Type: 
  Country: None (occurrence: None)
  Receive Date: 20051123
  Receipt Date: 20051123
  Transmission Date: 20060501
  Serious: Yes (Life-Threatening)
  Sender: FDA-Public Use
  Company Number: None

PATIENT
  Age: 56 Year
  Sex: Male
  Weight: 73 kg

DRUGS (10)
  1. ATENOLOL [Suspect]
     Indication: HYPERTENSION
     Dosage: 150 MG  PO X 1
     Route: 048
     Dates: start: 20050704
  2. ATENOLOL [Suspect]
     Indication: MYOCARDIAL INFARCTION
     Dosage: 150 MG  PO X 1
     Route: 048
     Dates: start: 20050704
  3. CEFEPIME [Concomitant]
  4. DOCUSATE [Concomitant]
  5. ENALAPRIL [Concomitant]
  6. HYDRALAZINE [Concomitant]
  7. RANITIDINE [Concomitant]
  8. SERTRALINE HCL [Concomitant]
  9. VALSARTAN [Concomitant]
  10. HEPARIN [Concomitant]

REACTIONS (3)
  - BRADYCARDIA [None]
  - CARDIAC ARREST [None]
  - INCORRECT DOSE ADMINISTERED [None]
